FAERS Safety Report 8498825-9 (Version None)
Quarter: 2012Q3

REPORT INFORMATION
  Report Type: 
  Country: None (occurrence: None)
  Receive Date: 20120710
  Receipt Date: 20120626
  Transmission Date: 20120928
  Serious: Yes (Other)
  Sender: FDA-Public Use
  Company Number: BR-AMGEN-BRASP2012040936

PATIENT
  Age: 43 Year
  Sex: Female
  Weight: 33 kg

DRUGS (5)
  1. ENBREL [Suspect]
     Indication: RHEUMATOID ARTHRITIS
     Dosage: 50 MG, ONCE WEEKLY
     Route: 058
     Dates: start: 20090801, end: 20120601
  2. ABLOK PLUS [Concomitant]
     Dosage: UNK UNK, UNK
  3. CALCORT [Concomitant]
     Dosage: UNK UNK, UNK
  4. VOLTAREN [Concomitant]
     Dosage: UNK
  5. NEXIUM                             /01479303/ [Concomitant]
     Dosage: UNK UNK, UNK

REACTIONS (1)
  - EYE HAEMORRHAGE [None]
